FAERS Safety Report 25774213 (Version 1)
Quarter: 2025Q3

REPORT INFORMATION
  Report Type: Spontaneous
  Country: US (occurrence: None)
  Receive Date: 20250905
  Receipt Date: 20250905
  Transmission Date: 20251020
  Serious: Yes (Hospitalization, Disabling)
  Sender: FDA-CTU
  Company Number: None

PATIENT
  Age: 38 Year
  Sex: Female

DRUGS (1)
  1. ZOLOFT [Suspect]
     Active Substance: SERTRALINE HYDROCHLORIDE

REACTIONS (21)
  - Drug withdrawal syndrome [None]
  - Anxiety [None]
  - Panic reaction [None]
  - Insomnia [None]
  - Skin burning sensation [None]
  - Vestibular disorder [None]
  - Vertigo [None]
  - Muscle spasms [None]
  - Balance disorder [None]
  - Influenza like illness [None]
  - Disturbance in attention [None]
  - Night sweats [None]
  - Diarrhoea [None]
  - Terminal insomnia [None]
  - Tinnitus [None]
  - Dyskinesia [None]
  - Tremor [None]
  - Electric shock sensation [None]
  - Menstruation irregular [None]
  - Suicidal ideation [None]
  - Tachyphrenia [None]

NARRATIVE: CASE EVENT DATE: 20250111
